FAERS Safety Report 8140493-X (Version None)
Quarter: 2012Q1

REPORT INFORMATION
  Report Type: 
  Country: None (occurrence: None)
  Receive Date: 20120216
  Receipt Date: 20120214
  Transmission Date: 20120608
  Serious: Yes (Hospitalization)
  Sender: FDA-Public Use
  Company Number: US-PFIZER INC-2012040968

PATIENT
  Sex: Female
  Weight: 65.306 kg

DRUGS (2)
  1. XANAX [Suspect]
     Dosage: UNK
     Dates: end: 20110101
  2. XANAX [Suspect]
     Dosage: UNK
     Dates: start: 20000101

REACTIONS (8)
  - RASH [None]
  - FUNCTIONAL GASTROINTESTINAL DISORDER [None]
  - MALAISE [None]
  - RECTAL DISCHARGE [None]
  - DIET REFUSAL [None]
  - GASTROOESOPHAGEAL REFLUX DISEASE [None]
  - VOMITING [None]
  - SWOLLEN TONGUE [None]
